FAERS Safety Report 23279086 (Version 1)
Quarter: 2023Q4

REPORT INFORMATION
  Report Type: Other
  Country: None (occurrence: CN)
  Receive Date: 20231209
  Receipt Date: 20231209
  Transmission Date: 20240109
  Serious: Yes (Hospitalization)
  Sender: FDA-Public Use
  Company Number: CN-B.Braun Medical Inc.-2149158

PATIENT
  Age: 55 Year
  Sex: Female

DRUGS (2)
  1. CEFUROXIME SODIUM [Suspect]
     Active Substance: CEFUROXIME SODIUM
     Indication: Pharyngeal erythema
  2. METRONIDAZOLE [Suspect]
     Active Substance: METRONIDAZOLE

REACTIONS (1)
  - Drug ineffective [None]
